FAERS Safety Report 15821725 (Version 4)
Quarter: 2019Q2

REPORT INFORMATION
  Report Type: Spontaneous
  Country: US (occurrence: US)
  Receive Date: 20190114
  Receipt Date: 20190613
  Transmission Date: 20190711
  Serious: No
  Sender: FDA-Public Use
  Company Number: US-PFIZER INC-2019015979

PATIENT
  Age: 60 Year
  Sex: Male
  Weight: 111.1 kg

DRUGS (1)
  1. GABAPENTIN. [Suspect]
     Active Substance: GABAPENTIN
     Indication: POST HERPETIC NEURALGIA
     Dosage: UNK
     Dates: start: 2010, end: 2012

REACTIONS (3)
  - Drug ineffective [Unknown]
  - Discomfort [Unknown]
  - Pruritus [Unknown]
